FAERS Safety Report 4417096-3 (Version None)
Quarter: 2004Q2

REPORT INFORMATION
  Report Type: 
  Country: None (occurrence: None)
  Receive Date: 20040628
  Receipt Date: 20031121
  Transmission Date: 20050107
  Serious: No
  Sender: FDA-Public Use
  Company Number: USA-2003-0010954

PATIENT
  Sex: Female

DRUGS (2)
  1. SPECTRACEF [Suspect]
     Indication: PHARYNGITIS
     Dosage: 200 MG, BID
     Dates: start: 20031120
  2. SPECTRACEF [Suspect]
     Indication: SINUSITIS
     Dosage: 200 MG, BID
     Dates: start: 20031120

REACTIONS (1)
  - TREMOR [None]
